FAERS Safety Report 7960641-1 (Version None)
Quarter: 2011Q4

REPORT INFORMATION
  Report Type: 
  Country: None (occurrence: None)
  Receive Date: 20111206
  Receipt Date: 20111129
  Transmission Date: 20120403
  Serious: Yes (Hospitalization)
  Sender: FDA-Public Use
  Company Number: US-ASTRAZENECA-2011SE29829

PATIENT
  Age: 64 Year
  Sex: Female

DRUGS (2)
  1. CRESTOR [Suspect]
     Route: 048
  2. OXYGEN [Concomitant]

REACTIONS (3)
  - ARTERIAL OCCLUSIVE DISEASE [None]
  - INTESTINAL ISCHAEMIA [None]
  - APHASIA [None]
